FAERS Safety Report 6638973-9 (Version None)
Quarter: 2010Q1

REPORT INFORMATION
  Report Type: 
  Country: None (occurrence: None)
  Receive Date: 20100317
  Receipt Date: 20100310
  Transmission Date: 20100710
  Serious: Yes (Disabling, Other)
  Sender: FDA-Public Use
  Company Number: AR-B.I. PHARMACEUTICALS,INC./RIDGEFIELD-2010-DE-01579GD

PATIENT
  Age: 68 Year
  Sex: Female

DRUGS (3)
  1. PRAMIPEXOLE DIHYDROCHLORIDE [Suspect]
     Indication: PARKINSON'S DISEASE
     Dosage: 3 MG
  2. CARBIDOPA AND LEVODOPA [Suspect]
     Indication: PARKINSON'S DISEASE
     Dosage: 1250 MG
  3. MIRTAZAPINE [Suspect]
     Indication: PARKINSON'S DISEASE
     Dosage: 30 MG

REACTIONS (5)
  - COMPULSIVE SHOPPING [None]
  - DEPRESSIVE SYMPTOM [None]
  - FEELING GUILTY [None]
  - IMPULSE-CONTROL DISORDER [None]
  - KLEPTOMANIA [None]
